FAERS Safety Report 4369304-5 (Version None)
Quarter: 2004Q2

REPORT INFORMATION
  Report Type: 
  Country: None (occurrence: None)
  Receive Date: 20040602
  Receipt Date: 20040514
  Transmission Date: 20050107
  Serious: Yes (Other)
  Sender: FDA-Public Use
  Company Number: 2004BL003638

PATIENT
  Age: 28 Year
  Sex: Female

DRUGS (3)
  1. MINOXIDIL [Suspect]
     Indication: ALOPECIA
     Dosage: TOPICAL
     Route: 061
  2. TRIMETHOPRIM-SYLFAMETHOXAZOLE (UNMAPPED) [Concomitant]
     Indication: INFLUENZA LIKE ILLNESS
     Dosage: 2 TAB; TWICE A DAY; ORAL
     Route: 048
  3. ERYTHROMYCIN [Concomitant]

REACTIONS (5)
  - ABORTION INDUCED [None]
  - CAUDAL REGRESSION SYNDROME [None]
  - DRUG EXPOSURE DURING PREGNANCY [None]
  - INFLUENZA LIKE ILLNESS [None]
  - PYREXIA [None]
